FAERS Safety Report 6247562-X (Version None)
Quarter: 2009Q2

REPORT INFORMATION
  Report Type: 
  Country: None (occurrence: None)
  Receive Date: 20090626
  Receipt Date: 20090504
  Transmission Date: 20091009
  Serious: Yes (Death, Hospitalization)
  Sender: FDA-Public Use
  Company Number: IT-PFIZER INC-2009182814

PATIENT
  Age: 49 Year

DRUGS (8)
  1. BLINDED *NO SUBJECT DRUG [Suspect]
     Indication: ASPERGILLOSIS
     Dosage: 100 MG, 1X/DAY
     Route: 042
     Dates: start: 20090205, end: 20090218
  2. BLINDED *PLACEBO [Suspect]
     Indication: ASPERGILLOSIS
     Dosage: 100 MG, 1X/DAY
     Route: 042
     Dates: start: 20090205, end: 20090218
  3. BLINDED ANIDULAFUNGIN [Suspect]
     Indication: ASPERGILLOSIS
     Dosage: 100 MG, 1X/DAY
     Route: 042
     Dates: start: 20090205, end: 20090218
  4. VORICONAZOLE [Suspect]
     Dosage: 300 MG, 2X/DAY
     Route: 042
     Dates: start: 20090205, end: 20090220
  5. OMEPRAZOLE [Concomitant]
     Dosage: UNK
     Route: 048
     Dates: start: 20090127, end: 20090417
  6. AMOXICILLIN [Concomitant]
     Dosage: UNK
     Route: 048
     Dates: start: 20090127, end: 20090417
  7. ACICLOVIR [Concomitant]
     Dosage: UNK
     Route: 048
     Dates: start: 20090127, end: 20090417
  8. TRIMETHOPRIM SULFATE [Concomitant]
     Dosage: UNK
     Route: 048
     Dates: start: 20090213, end: 20090417

REACTIONS (2)
  - DISEASE PROGRESSION [None]
  - LYMPHOMA [None]
